FAERS Safety Report 10327500 (Version 2)
Quarter: 2014Q3

REPORT INFORMATION
  Report Type: Report from Study
  Country: CH (occurrence: CH)
  Receive Date: 20140721
  Receipt Date: 20140721
  Transmission Date: 20150326
  Serious: Yes (Hospitalization, Other)
  Sender: FDA-Public Use
  Company Number: CH-ROCHE-1427540

PATIENT
  Age: 39 Year
  Sex: Male

DRUGS (4)
  1. ENOXAPARIN SODIUM. [Suspect]
     Active Substance: ENOXAPARIN SODIUM
     Indication: PERIPHERAL ISCHAEMIA
     Route: 065
  2. ALTEPLASE [Suspect]
     Active Substance: ALTEPLASE
     Indication: PERIPHERAL ISCHAEMIA
     Dosage: CATHETER-DIRECTED BOLUS OF 8 MG, FOLLOWED BY 1 MG/H
     Route: 013
  3. MIDAZOLAM [Suspect]
     Active Substance: MIDAZOLAM\MIDAZOLAM HYDROCHLORIDE
     Indication: PRODUCT USED FOR UNKNOWN INDICATION
     Route: 013
  4. HEPARIN IV (BOLUS) [Suspect]
     Active Substance: HEPARIN SODIUM
     Indication: PERIPHERAL ISCHAEMIA
     Dosage: BOLUS DOSE OF 60 IU/KG, FOLLOWED BY DOSE ADJUSTMENT TO MAINTAIN A MEAN PARTIAL THROMBOPLASTIN TIME 1
     Route: 040

REACTIONS (4)
  - Medication error [Unknown]
  - Peripheral ischaemia [Recovered/Resolved]
  - Compartment syndrome [Recovered/Resolved]
  - Reperfusion injury [Recovered/Resolved]
